FAERS Safety Report 4672840-5 (Version None)
Quarter: 2005Q2

REPORT INFORMATION
  Report Type: 
  Country: None (occurrence: None)
  Receive Date: 20050523
  Receipt Date: 20050516
  Transmission Date: 20051028
  Serious: Yes (Disabling, Other)
  Sender: FDA-Public Use
  Company Number: 2005-05-0743

PATIENT
  Age: 50 Year
  Sex: Male

DRUGS (6)
  1. INFERGEN [Suspect]
     Indication: HEPATITIS C
     Dosage: 15-9 MCG QD SUBCUTANEOUS
     Route: 058
     Dates: start: 20041014, end: 20041027
  2. INFERGEN [Suspect]
     Indication: HEPATITIS C
     Dosage: 15-9 MCG QD SUBCUTANEOUS
     Route: 058
     Dates: start: 20041028, end: 20041108
  3. RIBAVIRIN [Suspect]
     Indication: HEPATITIS C
     Dosage: 1000 MG QD ORAL
     Route: 048
     Dates: start: 20041014, end: 20041108
  4. SYNTHROID [Concomitant]
  5. AMBIEN [Concomitant]
  6. PROTONIX [Concomitant]

REACTIONS (5)
  - ABASIA [None]
  - ASTHENIA [None]
  - CARNITINE DEFICIENCY [None]
  - FATIGUE [None]
  - MUSCULAR WEAKNESS [None]
